FAERS Safety Report 15567421 (Version 1)
Quarter: 2018Q4

REPORT INFORMATION
  Report Type: Report from Study
  Country: IT (occurrence: IT)
  Receive Date: 20181030
  Receipt Date: 20181030
  Transmission Date: 20190205
  Serious: Yes (Hospitalization)
  Sender: FDA-Public Use
  Company Number: IT-TEVA-2018-IT-969714

PATIENT
  Age: 87 Year
  Sex: Female

DRUGS (3)
  1. TRITTICO 75 MG COMPRESSE A RILASCIO PROLUNGATO [Suspect]
     Active Substance: TRAZODONE HYDROCHLORIDE
     Indication: MEDICATION ERROR
     Route: 048
     Dates: start: 20180930, end: 20180930
  2. QUETIAPINE. [Suspect]
     Active Substance: QUETIAPINE
     Indication: MEDICATION ERROR
     Route: 048
     Dates: start: 20180930, end: 20180930
  3. TAVOR (LORAZEPAM) [Suspect]
     Active Substance: LORAZEPAM
     Indication: MEDICATION ERROR
     Route: 048
     Dates: start: 20180930, end: 20180930

REACTIONS (2)
  - Somnolence [Recovered/Resolved]
  - Medication error [Recovered/Resolved]

NARRATIVE: CASE EVENT DATE: 20180930
